FAERS Safety Report 16164468 (Version 2)
Quarter: 2019Q2

REPORT INFORMATION
  Report Type: Spontaneous
  Country: CN (occurrence: CN)
  Receive Date: 20190405
  Receipt Date: 20190522
  Transmission Date: 20190711
  Serious: Yes (Other)
  Sender: FDA-Public Use
  Company Number: CN-ROCHE-2287143

PATIENT
  Age: 49 Year
  Sex: Male

DRUGS (14)
  1. FLUOROURACIL. [Suspect]
     Active Substance: FLUOROURACIL
     Dosage: CIV FOR 46H
     Route: 065
  2. IRINOTECAN [Suspect]
     Active Substance: IRINOTECAN
     Indication: COLON CANCER STAGE IV
     Route: 065
     Dates: start: 20160712
  3. FLUOROURACIL. [Suspect]
     Active Substance: FLUOROURACIL
     Indication: COLON CANCER STAGE IV
     Dosage: CIV FOR 46H
     Route: 065
     Dates: start: 20160712
  4. FLUOROURACIL. [Suspect]
     Active Substance: FLUOROURACIL
     Route: 065
     Dates: start: 201701
  5. IRINOTECAN [Suspect]
     Active Substance: IRINOTECAN
     Route: 065
  6. AVASTIN [Suspect]
     Active Substance: BEVACIZUMAB
     Route: 065
  7. OXALIPLATIN. [Suspect]
     Active Substance: OXALIPLATIN
     Indication: COLON CANCER STAGE IV
     Route: 065
     Dates: start: 20160712
  8. CALCIUM FOLINATE [Suspect]
     Active Substance: LEUCOVORIN CALCIUM
     Route: 065
  9. AVASTIN [Suspect]
     Active Substance: BEVACIZUMAB
     Indication: COLON CANCER STAGE IV
     Route: 065
     Dates: start: 20160712
  10. OXALIPLATIN. [Suspect]
     Active Substance: OXALIPLATIN
     Route: 065
  11. CETUXIMAB. [Concomitant]
     Active Substance: CETUXIMAB
     Indication: COLON CANCER STAGE IV
  12. AVASTIN [Suspect]
     Active Substance: BEVACIZUMAB
     Route: 065
     Dates: start: 201701
  13. AVASTIN [Suspect]
     Active Substance: BEVACIZUMAB
     Route: 065
     Dates: start: 201706
  14. CALCIUM FOLINATE [Suspect]
     Active Substance: LEUCOVORIN CALCIUM
     Indication: COLON CANCER STAGE IV
     Route: 065
     Dates: start: 20160712

REACTIONS (4)
  - Pancreatitis acute [Unknown]
  - Leukopenia [Recovering/Resolving]
  - Neutropenia [Recovering/Resolving]
  - Ascites [Unknown]

NARRATIVE: CASE EVENT DATE: 20160821
